FAERS Safety Report 7974782-6 (Version None)
Quarter: 2011Q4

REPORT INFORMATION
  Report Type: 
  Country: None (occurrence: None)
  Receive Date: 20111213
  Receipt Date: 20111206
  Transmission Date: 20120403
  Serious: Yes (Other)
  Sender: FDA-Public Use
  Company Number: PHHY2011RU107431

PATIENT
  Age: 48 Year
  Sex: Female

DRUGS (1)
  1. EXTAVIA [Suspect]
     Indication: SECONDARY PROGRESSIVE MULTIPLE SCLEROSIS
     Route: 058
     Dates: start: 20100801, end: 20111123

REACTIONS (1)
  - ANGINA PECTORIS [None]
